FAERS Safety Report 12473977 (Version 1)
Quarter: 2016Q2

REPORT INFORMATION
  Report Type: Spontaneous
  Country: CH (occurrence: CH)
  Receive Date: 20160616
  Receipt Date: 20160616
  Transmission Date: 20160815
  Serious: Yes (Life-Threatening, Hospitalization)
  Sender: FDA-Public Use
  Company Number: CH-TEVA-665756ISR

PATIENT
  Age: 76 Year
  Sex: Male

DRUGS (7)
  1. LORASIFAR [Concomitant]
     Dosage: 1 MILLIGRAM DAILY; STRENGTH 1 MG
     Route: 048
  2. ASPIRIN CARDIO [Concomitant]
     Active Substance: ASPIRIN
     Dosage: 100 MILLIGRAM DAILY; STRENGTH 100 MG
     Route: 048
  3. ATORVASTATIN [Concomitant]
     Active Substance: ATORVASTATIN
     Dosage: 20 MILLIGRAM DAILY;
     Route: 048
  4. ENATEC 5 TABLETTEN [Suspect]
     Active Substance: ENALAPRIL MALEATE
     Indication: HYPERTENSION
     Dosage: 5 MILLIGRAM DAILY; STRENGTH 5 MG
     Route: 048
     Dates: end: 20160205
  5. MAGNESIUM [Concomitant]
     Active Substance: MAGNESIUM
     Dosage: AS NEEDED
     Route: 048
  6. BELOC ZOK [Concomitant]
     Active Substance: METOPROLOL SUCCINATE
     Dosage: 25 MILLIGRAM DAILY;
     Route: 048
  7. MUCO-MEPHA [Concomitant]
     Active Substance: ACETYLCYSTEINE
     Dosage: 600 MILLIGRAM DAILY; STRENGTH 600 MG, EFFERVESCENT TABLET
     Route: 048

REACTIONS (5)
  - Dysarthria [Recovered/Resolved]
  - Dyspnoea [Recovered/Resolved]
  - Wheezing [None]
  - Angioedema [Recovered/Resolved]
  - Lip swelling [Recovered/Resolved]

NARRATIVE: CASE EVENT DATE: 20160205
